FAERS Safety Report 7921583-0 (Version None)
Quarter: 2011Q4

REPORT INFORMATION
  Report Type: 
  Country: None (occurrence: None)
  Receive Date: 20111117
  Receipt Date: 20111115
  Transmission Date: 20120403
  Serious: Yes (Hospitalization, Other)
  Sender: FDA-Public Use
  Company Number: PHEH2006US15179

PATIENT
  Sex: Male

DRUGS (23)
  1. ZOMETA [Suspect]
     Dosage: 4 MG,
     Dates: start: 20050101, end: 20051014
  2. HYDROCHLOROTHIAZIDE [Concomitant]
     Indication: BLOOD PRESSURE
     Dosage: 25 MG,
     Route: 048
  3. LORATADINE [Concomitant]
  4. ERYTHROMYCIN [Concomitant]
  5. ACETAMINOPHEN [Concomitant]
  6. ALBUTEROL [Concomitant]
  7. GLYBURIDE [Concomitant]
     Indication: DIABETES MELLITUS
     Dosage: 3 MG, QD
     Route: 048
  8. LISINOPRIL [Concomitant]
     Indication: BLOOD PRESSURE
     Dosage: 10 MG,
  9. METFORMIN HCL [Concomitant]
     Indication: DIABETES MELLITUS
     Route: 048
  10. ASPIRIN [Concomitant]
     Route: 048
  11. DYNA-HEX [Concomitant]
  12. GLUCOSAMINE W/CHONDROITIN [Concomitant]
  13. ATROVENT [Concomitant]
  14. NASACORT [Concomitant]
  15. DOXYCYCLINE [Concomitant]
  16. VITAMIN D [Concomitant]
  17. GLUCOVANCE [Concomitant]
  18. DEXAMETHASONE [Concomitant]
  19. ACYCLOVIR [Concomitant]
     Dosage: 800 MG,
     Route: 048
  20. CLARITIN [Concomitant]
  21. CALCIUM CARBONATE [Concomitant]
  22. MELOXICAM [Concomitant]
  23. VIAGRA [Concomitant]

REACTIONS (51)
  - RASH [None]
  - NEPHROLITHIASIS [None]
  - LEUKOPENIA [None]
  - VITAMIN D DEFICIENCY [None]
  - CERUMEN IMPACTION [None]
  - MULTIPLE MYELOMA [None]
  - DEAFNESS NEUROSENSORY [None]
  - PNEUMONIA [None]
  - COLON ADENOMA [None]
  - SYNOVIAL CYST [None]
  - ERECTILE DYSFUNCTION [None]
  - TONGUE INJURY [None]
  - MONOCLONAL GAMMOPATHY [None]
  - GENERAL PHYSICAL HEALTH DETERIORATION [None]
  - ORAL DISORDER [None]
  - TOOTH LOSS [None]
  - CALCULUS URETERIC [None]
  - MENISCUS LESION [None]
  - OSTEONECROSIS OF JAW [None]
  - BONE LOSS [None]
  - INTERVERTEBRAL DISC SPACE NARROWING [None]
  - HEPATIC ENZYME INCREASED [None]
  - COLONIC POLYP [None]
  - FATIGUE [None]
  - ANAEMIA [None]
  - MUSCLE STRAIN [None]
  - PAIN [None]
  - DECREASED INTEREST [None]
  - TOOTH DEPOSIT [None]
  - RENAL COLIC [None]
  - ANXIETY [None]
  - HERPES ZOSTER [None]
  - HYPOGLYCAEMIA [None]
  - SCOLIOSIS [None]
  - BRONCHITIS [None]
  - EXPOSED BONE IN JAW [None]
  - OSTEOARTHRITIS [None]
  - NASAL SEPTUM DEVIATION [None]
  - SINUSITIS [None]
  - HYDRONEPHROSIS [None]
  - HAEMOCHROMATOSIS [None]
  - HYPOGONADISM [None]
  - POST-TRAUMATIC STRESS DISORDER [None]
  - OEDEMA PERIPHERAL [None]
  - OSTEOPOROSIS [None]
  - BONE LESION [None]
  - CHEST PAIN [None]
  - DERMATITIS CONTACT [None]
  - TINNITUS [None]
  - HYPERGLYCAEMIA [None]
  - CONSTIPATION [None]
